FAERS Safety Report 15279581 (Version 1)
Quarter: 2018Q3

REPORT INFORMATION
  Report Type: Spontaneous
  Country: US (occurrence: US)
  Receive Date: 20180815
  Receipt Date: 20180815
  Transmission Date: 20181010
  Serious: No
  Sender: FDA-Public Use
  Company Number: US-PFIZER INC-2018325838

PATIENT
  Age: 73 Year
  Sex: Female

DRUGS (5)
  1. THEOPHYLLINE [Suspect]
     Active Substance: THEOPHYLLINE ANHYDROUS
     Dosage: UNK
  2. PREDNISONE. [Suspect]
     Active Substance: PREDNISONE
     Dosage: UNK
  3. IBUPROFEN. [Suspect]
     Active Substance: IBUPROFEN
     Dosage: UNK
  4. ETODOLAC. [Suspect]
     Active Substance: ETODOLAC
     Dosage: UNK
  5. AMINOPHYLLINE. [Suspect]
     Active Substance: AMINOPHYLLINE
     Dosage: UNK

REACTIONS (1)
  - Drug hypersensitivity [Unknown]
